FAERS Safety Report 4399559-2 (Version None)
Quarter: 2004Q3

REPORT INFORMATION
  Report Type: 
  Country: None (occurrence: None)
  Receive Date: 20040716
  Receipt Date: 20040706
  Transmission Date: 20050211
  Serious: Yes (Hospitalization)
  Sender: FDA-Public Use
  Company Number: JP-GLAXOSMITHKLINE-B0338385A

PATIENT
  Sex: Male
  Weight: 0.81 kg

DRUGS (2)
  1. ZOVIRAX [Suspect]
     Indication: HERPES SIMPLEX
     Dosage: 10MGK PER DAY
     Route: 042
  2. MODACIN [Concomitant]
     Route: 065

REACTIONS (2)
  - PANCYTOPENIA [None]
  - RENAL FAILURE [None]
